FAERS Safety Report 18638200 (Version 1)
Quarter: 2020Q4

REPORT INFORMATION
  Report Type: Spontaneous
  Country: US (occurrence: US)
  Receive Date: 20201219
  Receipt Date: 20201219
  Transmission Date: 20210114
  Serious: Yes (Life-Threatening, Hospitalization)
  Sender: FDA-Public Use
  Company Number: US-AXELLIA-003574

PATIENT
  Age: 52 Year
  Sex: Female
  Weight: 92.5 kg

DRUGS (1)
  1. VANCOMYCIN FRESENIUS KABI [Suspect]
     Active Substance: VANCOMYCIN HYDROCHLORIDE
     Indication: BACTERAEMIA
     Dosage: STRENGTH: 1250MG (500MG VIALS X3)
     Route: 042
     Dates: start: 20200724, end: 20200724

REACTIONS (1)
  - Drug hypersensitivity [Recovered/Resolved]

NARRATIVE: CASE EVENT DATE: 20200724
